APPROVED DRUG PRODUCT: BRIVARACETAM
Active Ingredient: BRIVARACETAM
Strength: 75MG
Dosage Form/Route: TABLET;ORAL
Application: A214501 | Product #004
Applicant: ZYDUS PHARMACEUTICALS USA INC
Approved: Oct 3, 2022 | RLD: No | RS: No | Type: DISCN